FAERS Safety Report 5168046-6 (Version None)
Quarter: 2006Q4

REPORT INFORMATION
  Report Type: 
  Country: None (occurrence: None)
  Receive Date: 20061208
  Receipt Date: 20060502
  Transmission Date: 20070319
  Serious: No
  Sender: FDA-Public Use
  Company Number: US-GLAXOSMITHKLINE-A0604083A

PATIENT
  Age: 59 Year
  Sex: Female

DRUGS (3)
  1. AVANDAMET [Suspect]
     Dosage: 1TAB TWICE PER DAY
     Route: 048
  2. TOPROL-XL [Concomitant]
  3. ATIVAN [Concomitant]

REACTIONS (2)
  - DIARRHOEA [None]
  - FEELING ABNORMAL [None]
